FAERS Safety Report 9187324 (Version 2)
Quarter: 2012Q4

REPORT INFORMATION
  Report Type: 
  Country: US (occurrence: US)
  Receive Date: 20121109
  Receipt Date: 20121112
  Transmission Date: 20130627
  Serious: Yes (Other)
  Sender: FDA-Public Use
  Company Number: US-RB-046261-12

PATIENT
  Age: 69 Year
  Sex: Male

DRUGS (5)
  1. MUCINEX FAST MAX ADULT CONGESTION + COUGH [Suspect]
     Indication: PRODUCT USED FOR UNKNOWN INDICATION
     Route: 048
     Dates: start: 20121008
  2. MUCINEX FAST MAX ADULT CONGESTION + COUGH [Suspect]
     Indication: PRODUCT USED FOR UNKNOWN INDICATION
  3. MUCINEX FAST MAX ADULT CONGESTION + COUGH [Suspect]
     Indication: PRODUCT USED FOR UNKNOWN INDICATION
  4. ASPIRIN [Concomitant]
     Indication: HEADACHE
  5. ALKA SELTZER [Concomitant]
     Indication: NASOPHARYNGITIS

REACTIONS (11)
  - Extrasystoles [Recovered/Resolved]
  - Abdominal pain upper [Recovered/Resolved]
  - Insomnia [Recovered/Resolved]
  - Pallor [Recovered/Resolved]
  - Constipation [Recovered/Resolved]
  - Confusional state [Recovered/Resolved]
  - Hypertension [Recovered/Resolved]
  - Headache [Recovered/Resolved]
  - Diarrhoea [Recovered/Resolved]
  - Dizziness [Recovered/Resolved]
  - Somnolence [Recovered/Resolved]
